FAERS Safety Report 18436990 (Version 1)
Quarter: 2020Q4

REPORT INFORMATION
  Report Type: Spontaneous
  Country: US (occurrence: US)
  Receive Date: 20201028
  Receipt Date: 20201028
  Transmission Date: 20210114
  Serious: Yes (Other)
  Sender: FDA-Public Use
  Company Number: US-PFIZER INC-2020410461

PATIENT
  Age: 70 Year
  Sex: Male

DRUGS (2)
  1. HEPARIN SODIUM. [Suspect]
     Active Substance: HEPARIN SODIUM
     Indication: COAGULOPATHY
  2. HEPARIN SODIUM. [Suspect]
     Active Substance: HEPARIN SODIUM
     Indication: ATRIAL FLUTTER
     Dosage: UNK
     Route: 041

REACTIONS (5)
  - Hypoxia [Unknown]
  - Drug ineffective [Unknown]
  - Livedo reticularis [Unknown]
  - Condition aggravated [Unknown]
  - Drug resistance [Unknown]
